FAERS Safety Report 21474598 (Version 1)
Quarter: 2022Q4

REPORT INFORMATION
  Report Type: Spontaneous
  Country: US (occurrence: None)
  Receive Date: 20221017
  Receipt Date: 20221017
  Transmission Date: 20230113
  Serious: Yes (Hospitalization)
  Sender: FDA-Public Use
  Company Number: None

PATIENT
  Age: 62 Year
  Sex: Female

DRUGS (1)
  1. PREVYMIS [Suspect]
     Active Substance: LETERMOVIR
     Dosage: 480MG DAILY ORAL?
     Route: 048
     Dates: start: 202209

REACTIONS (1)
  - Bone marrow transplant [None]

NARRATIVE: CASE EVENT DATE: 20221017
